FAERS Safety Report 9640421 (Version 2)
Quarter: 2014Q1

REPORT INFORMATION
  Report Type: Report from Study
  Country: US (occurrence: US)
  Receive Date: 20131023
  Receipt Date: 20140106
  Transmission Date: 20141002
  Serious: Yes (Hospitalization, Disabling, Other)
  Sender: FDA-Public Use
  Company Number: PHEH2013US021906

PATIENT
  Age: 92 Year
  Sex: Female

DRUGS (15)
  1. RECLAST [Suspect]
     Indication: OSTEOPOROSIS POSTMENOPAUSAL
     Dosage: 5 MG, UNK
     Route: 042
     Dates: start: 201111
  2. RECLAST [Suspect]
     Dosage: 5 MG, UNK
     Route: 042
     Dates: start: 201301
  3. TYLENOL ARTHRITIS [Concomitant]
     Dosage: 650 MG, TID
     Route: 048
  4. CALCIUM CARBONATE AND VITAMIN D [Concomitant]
     Dosage: 1 DF, BID
     Route: 048
  5. VITAMIN D3 [Concomitant]
     Dosage: 1 DF, QD
     Route: 048
  6. PLAVIX [Concomitant]
     Indication: CEREBROVASCULAR ACCIDENT
     Dosage: 75 MG, QD
     Route: 048
  7. ROBITUSSIN DM [Concomitant]
     Indication: COUGH
     Dosage: 10 ML, Q4H (10-100MG/5ML)
     Route: 048
  8. COLACE [Concomitant]
     Indication: CONSTIPATION
     Dosage: 100 MG, BID
     Route: 048
  9. GLUCOSAMINE HCL [Concomitant]
     Dosage: 1000 MG, BID
     Route: 048
  10. SYNTHROID [Concomitant]
     Indication: HYPOTHYROIDISM
     Dosage: 100 UG, QD
     Route: 048
  11. COZAAR [Concomitant]
     Indication: HYPERTENSION
     Dosage: HALF A TABLET DAILY
     Route: 048
  12. DIPHENOXYLATE/ATROPINE [Concomitant]
     Dosage: UNK
  13. MYCOSTATIN [Concomitant]
     Dosage: 100000 UNIT/GM
     Route: 061
  14. ZOLOFT [Concomitant]
     Indication: DEPRESSION
     Dosage: 50 MG, QD
     Route: 048
  15. EUCERIN                            /01160201/ [Concomitant]
     Indication: PRURITUS
     Dosage: UNK
     Route: 061

REACTIONS (20)
  - Hip fracture [Unknown]
  - Macular degeneration [Unknown]
  - Spinal compression fracture [Unknown]
  - Skin candida [Unknown]
  - White blood cell count increased [Unknown]
  - Neutrophil count increased [Unknown]
  - Femoral neck fracture [Unknown]
  - Nasal neoplasm [Unknown]
  - Muscular weakness [Unknown]
  - Musculoskeletal pain [Unknown]
  - Renal failure chronic [Unknown]
  - Mean cell haemoglobin concentration decreased [Unknown]
  - Red cell distribution width increased [Unknown]
  - Platelet count increased [Unknown]
  - Blood sodium increased [Unknown]
  - Red blood cell count increased [Unknown]
  - Haemoglobin increased [Unknown]
  - Haematocrit increased [Unknown]
  - Blood potassium increased [Unknown]
  - Back pain [Unknown]
